FAERS Safety Report 9417165 (Version 1)
Quarter: 2013Q3

REPORT INFORMATION
  Report Type: Spontaneous
  Country: NL (occurrence: None)
  Receive Date: 20130722
  Receipt Date: 20130722
  Transmission Date: 20140515
  Serious: Yes (Death, Life-Threatening, Hospitalization)
  Sender: FDA-Public Use
  Company Number: 2013206083

PATIENT
  Age: 58 Year
  Sex: Female

DRUGS (4)
  1. PIPERACILLIN, TAZOBACTAM [Suspect]
     Indication: ABSCESS
  2. VANCOMYCIN HCL [Suspect]
     Indication: ABSCESS
  3. PREDNISONE (PREDNISONE) [Concomitant]
  4. CLEMASTINE (CLEMASTINE) [Concomitant]

REACTIONS (8)
  - Drug reaction with eosinophilia and systemic symptoms [None]
  - Renal failure [None]
  - Respiratory failure [None]
  - Metabolic acidosis [None]
  - Acute respiratory distress syndrome [None]
  - Continuous haemodiafiltration [None]
  - Unresponsive to stimuli [None]
  - Cerebral haemorrhage [None]
